FAERS Safety Report 23215494 (Version 1)
Quarter: 2023Q4

REPORT INFORMATION
  Report Type: Spontaneous
  Country: CA (occurrence: CA)
  Receive Date: 20231122
  Receipt Date: 20231122
  Transmission Date: 20240109
  Serious: Yes (Other)
  Sender: FDA-Public Use
  Company Number: CA-SANDOZ-SDZ2023CA002945

PATIENT
  Age: 73 Year
  Sex: Male

DRUGS (6)
  1. ATENOLOL [Suspect]
     Active Substance: ATENOLOL
     Dosage: 50 MG, QD
     Route: 048
  2. ATENOLOL [Suspect]
     Active Substance: ATENOLOL
     Indication: Product used for unknown indication
     Dosage: 50 MG, QD, 1 DF
     Route: 048
  3. METOPROLOL [Suspect]
     Active Substance: METOPROLOL
     Dosage: 25 MG, BID
     Route: 065
  4. METOPROLOL [Suspect]
     Active Substance: METOPROLOL
     Indication: Product used for unknown indication
     Dosage: 25 MG, BID, 2DF
     Route: 065
  5. NIFEDIPINE [Suspect]
     Active Substance: NIFEDIPINE
     Dosage: 90 MG, QD
     Route: 065
  6. NIFEDIPINE [Suspect]
     Active Substance: NIFEDIPINE
     Indication: Product used for unknown indication
     Dosage: 90 MG, QD 1 DF
     Route: 065

REACTIONS (2)
  - Atrioventricular block complete [Recovered/Resolved]
  - Hypotension [Recovered/Resolved]
